FAERS Safety Report 13558318 (Version 6)
Quarter: 2017Q2

REPORT INFORMATION
  Report Type: Report from Study
  Country: US (occurrence: US)
  Receive Date: 20170518
  Receipt Date: 20170614
  Transmission Date: 20170830
  Serious: Yes (Death, Life-Threatening, Hospitalization)
  Sender: FDA-Public Use
  Company Number: US-ROCHE-1936285

PATIENT
  Age: 54 Year
  Sex: Female
  Weight: 60.7 kg

DRUGS (20)
  1. COMPAZINE [Concomitant]
     Active Substance: PROCHLORPERAZINE MALEATE
     Route: 065
     Dates: start: 20170224
  2. DEXTROSE. [Concomitant]
     Active Substance: DEXTROSE
     Route: 065
     Dates: start: 20170417, end: 20170417
  3. TYLENOL [Concomitant]
     Active Substance: ACETAMINOPHEN
     Route: 065
     Dates: start: 20170410
  4. CLARITIN (UNITED STATES) [Concomitant]
     Route: 065
     Dates: start: 1997
  5. BLINDED ENTINOSTAT [Suspect]
     Active Substance: ENTINOSTAT
     Route: 048
     Dates: start: 20170501
  6. FERROUS SULFATE. [Concomitant]
     Active Substance: FERROUS SULFATE
     Route: 065
     Dates: start: 20170310
  7. CIPROFLOXACIN. [Concomitant]
     Active Substance: CIPROFLOXACIN
     Route: 065
     Dates: start: 20170308, end: 20170312
  8. LIDOCAINE. [Concomitant]
     Active Substance: LIDOCAINE
     Route: 065
     Dates: start: 20170503, end: 20170503
  9. ADVIL [Concomitant]
     Active Substance: IBUPROFEN
     Route: 065
     Dates: start: 20170410
  10. ATEZOLIZUMAB [Suspect]
     Active Substance: ATEZOLIZUMAB
     Route: 042
     Dates: start: 20170419
  11. BLINDED ENTINOSTAT [Suspect]
     Active Substance: ENTINOSTAT
     Indication: BREAST CANCER
     Route: 048
     Dates: start: 20170329
  12. LEVOTHROID [Concomitant]
     Active Substance: LEVOTHYROXINE SODIUM
     Route: 065
     Dates: start: 20151005
  13. IBUPROFEN. [Concomitant]
     Active Substance: IBUPROFEN
     Route: 065
     Dates: start: 20170312
  14. BENADRYL [Concomitant]
     Active Substance: DIPHENHYDRAMINE HYDROCHLORIDE
     Route: 065
     Dates: start: 20170317
  15. GUAIFENESIN/CODEINE [Concomitant]
     Active Substance: CODEINE PHOSPHATE\GUAIFENESIN
     Route: 065
     Dates: start: 20170315
  16. ATEZOLIZUMAB [Suspect]
     Active Substance: ATEZOLIZUMAB
     Indication: BREAST CANCER
     Route: 042
     Dates: start: 20170329
  17. BLINDED ENTINOSTAT [Suspect]
     Active Substance: ENTINOSTAT
     Route: 048
     Dates: start: 20170412
  18. BLINDED ENTINOSTAT [Suspect]
     Active Substance: ENTINOSTAT
     Route: 048
     Dates: start: 20170426
  19. BLINDED ENTINOSTAT [Suspect]
     Active Substance: ENTINOSTAT
     Route: 048
     Dates: start: 20170419
  20. CEFAZOLIN [Concomitant]
     Active Substance: CEFAZOLIN
     Route: 065
     Dates: start: 20170417, end: 20170417

REACTIONS (4)
  - Cardiac tamponade [Recovered/Resolved]
  - Respiratory failure [Fatal]
  - Pericardial effusion [Recovered/Resolved]
  - Hyponatraemia [Not Recovered/Not Resolved]

NARRATIVE: CASE EVENT DATE: 20170504
